FAERS Safety Report 21471796 (Version 1)
Quarter: 2022Q4

REPORT INFORMATION
  Report Type: Spontaneous
  Country: FR (occurrence: FR)
  Receive Date: 20221018
  Receipt Date: 20221018
  Transmission Date: 20230113
  Serious: Yes (Hospitalization)
  Sender: FDA-Public Use
  Company Number: None

PATIENT
  Age: 35 Year
  Sex: Male

DRUGS (3)
  1. PAXLOVID [Interacting]
     Active Substance: NIRMATRELVIR\RITONAVIR
     Indication: COVID-19
     Dosage: 300 MG; FREQ:12 H
     Route: 048
     Dates: start: 20220730, end: 20220803
  2. ENVARSUS XR [Interacting]
     Active Substance: TACROLIMUS
     Indication: Autoimmune hepatitis
     Dosage: 2 MG
     Route: 048
     Dates: start: 202109, end: 20220730
  3. TACROLIMUS [Interacting]
     Active Substance: TACROLIMUS
     Indication: Autoimmune hepatitis
     Route: 048
     Dates: start: 20220731, end: 20220805

REACTIONS (2)
  - Drug level increased [Recovered/Resolved]
  - Drug interaction [Recovered/Resolved]

NARRATIVE: CASE EVENT DATE: 20220730
